FAERS Safety Report 5705264-X (Version None)
Quarter: 2008Q2

REPORT INFORMATION
  Report Type: 
  Country: None (occurrence: None)
  Receive Date: 20080410
  Receipt Date: 20080327
  Transmission Date: 20081010
  Serious: Yes (Other)
  Sender: FDA-Public Use
  Company Number: GB-GDP-08403780

PATIENT
  Age: 28 Year
  Sex: Female

DRUGS (1)
  1. CLOBETASOL PROPIONATE [Suspect]
     Indication: SKIN DISCOLOURATION
     Dosage: TOPICAL
     Route: 061

REACTIONS (5)
  - CUSHING'S SYNDROME [None]
  - DRUG ABUSE [None]
  - GENITAL CANDIDIASIS [None]
  - INFERTILITY FEMALE [None]
  - MYOPATHY [None]
